FAERS Safety Report 11085859 (Version 2)
Quarter: 2015Q2

REPORT INFORMATION
  Report Type: Spontaneous
  Country: US (occurrence: US)
  Receive Date: 20150503
  Receipt Date: 20150525
  Transmission Date: 20150821
  Serious: No
  Sender: FDA-Public Use
  Company Number: US-JNJFOC-20130807900

PATIENT
  Sex: Female
  Weight: 56.7 kg

DRUGS (2)
  1. ORTHO TRI CYCLEN LO [Suspect]
     Active Substance: ETHINYL ESTRADIOL\NORGESTIMATE
     Indication: POLYCYSTIC OVARIES
     Route: 048
     Dates: start: 2011
  2. UNSPECIFIED BIRTH CONTROL [Suspect]
     Active Substance: UNSPECIFIED INGREDIENT
     Indication: POLYCYSTIC OVARIES
     Route: 065
     Dates: start: 2011, end: 2011

REACTIONS (7)
  - Headache [Recovered/Resolved]
  - Product use issue [Unknown]
  - Metrorrhagia [Recovered/Resolved]
  - Pain [Not Recovered/Not Resolved]
  - Drug dose omission [Not Recovered/Not Resolved]
  - Alopecia [Not Recovered/Not Resolved]
  - Expired product administered [Recovered/Resolved]

NARRATIVE: CASE EVENT DATE: 2011
